FAERS Safety Report 8052220-5 (Version None)
Quarter: 2012Q1

REPORT INFORMATION
  Report Type: 
  Country: None (occurrence: None)
  Receive Date: 20120118
  Receipt Date: 20120109
  Transmission Date: 20120608
  Serious: Yes (Hospitalization)
  Sender: FDA-Public Use
  Company Number: US-BAYER-2010-001733

PATIENT
  Age: 30 Year
  Sex: Female
  Weight: 65.76 kg

DRUGS (3)
  1. TRAMADOL HCL [Concomitant]
     Dosage: UNK
     Dates: start: 20080221, end: 20080715
  2. YAZ [Suspect]
     Indication: CONTRACEPTION
     Dosage: UNK
     Dates: start: 20080701, end: 20090701
  3. ACETAMINOPHEN AND HYDROCODONE BITARTRATE [Concomitant]
     Indication: PAIN
     Dosage: UNK
     Dates: start: 20071030, end: 20081214

REACTIONS (1)
  - CHOLELITHIASIS [None]
